FAERS Safety Report 7134704-7 (Version None)
Quarter: 2010Q4

REPORT INFORMATION
  Report Type: 
  Country: None (occurrence: None)
  Receive Date: 20101203
  Receipt Date: 20101125
  Transmission Date: 20110411
  Serious: Yes (Death)
  Sender: FDA-Public Use
  Company Number: JP-ROCHE-670156

PATIENT
  Sex: Female
  Weight: 36 kg

DRUGS (5)
  1. AVASTIN [Suspect]
     Indication: LARGE INTESTINE CARCINOMA
     Route: 041
     Dates: start: 20080724, end: 20080907
  2. ELPLAT [Concomitant]
     Route: 041
  3. 5-FU [Concomitant]
     Route: 041
  4. LEVOFOLINATE [Concomitant]
  5. LOXONIN [Concomitant]
     Dosage: NOTE : A DOSE
     Route: 048

REACTIONS (4)
  - DISEASE PROGRESSION [None]
  - GASTROINTESTINAL PERFORATION [None]
  - INTERSTITIAL LUNG DISEASE [None]
  - SEPSIS [None]
